FAERS Safety Report 10740671 (Version 1)
Quarter: 2015Q1

REPORT INFORMATION
  Report Type: Spontaneous
  Country: PE (occurrence: None)
  Receive Date: 20150123
  Receipt Date: 20150123
  Transmission Date: 20150721
  Serious: Yes (Death, Hospitalization)
  Sender: FDA-Public Use
  Company Number: 8006133

PATIENT
  Age: 88 Year
  Sex: Female

DRUGS (1)
  1. EUTIROX (LEVOTHYROXINE SODIUM) (LEVOTHYROXINE SODIUM) [Suspect]
     Active Substance: LEVOTHYROXINE SODIUM
     Indication: PRODUCT USED FOR UNKNOWN INDICATION
     Dosage: 75 MCG (75 MCG, 1 IN 25 HR) ORAL
     Route: 048
     Dates: start: 201008, end: 201410

REACTIONS (1)
  - Gastric cancer [None]

NARRATIVE: CASE EVENT DATE: 2014
